FAERS Safety Report 6853547-2 (Version None)
Quarter: 2010Q3

REPORT INFORMATION
  Report Type: 
  Country: None (occurrence: None)
  Receive Date: 20100717
  Receipt Date: 20071212
  Transmission Date: 20110219
  Serious: No
  Sender: FDA-Public Use
  Company Number: US-PFIZER INC-2007106419

PATIENT
  Sex: Female

DRUGS (3)
  1. CHANTIX [Suspect]
  2. LAMICTAL [Concomitant]
  3. SEROQUEL [Concomitant]

REACTIONS (2)
  - HYPERSEXUALITY [None]
  - THINKING ABNORMAL [None]
